FAERS Safety Report 9377272 (Version 1)
Quarter: 2013Q3

REPORT INFORMATION
  Report Type: Spontaneous
  Country: PL (occurrence: PL)
  Receive Date: 20130701
  Receipt Date: 20130701
  Transmission Date: 20140515
  Serious: Yes (Hospitalization)
  Sender: FDA-Public Use
  Company Number: PL-MYLANLABS-2013S1014035

PATIENT
  Age: 4 Decade
  Sex: Female

DRUGS (4)
  1. IBUPROFEN [Suspect]
     Indication: LIGAMENT SPRAIN
     Dosage: 1.2G DAILY
     Route: 065
  2. ATENOLOL [Suspect]
     Indication: SUPRAVENTRICULAR EXTRASYSTOLES
     Dosage: INCREASED TO 100MG DAILY
     Route: 065
  3. ATENOLOL [Suspect]
     Indication: SUPRAVENTRICULAR EXTRASYSTOLES
     Dosage: 100MG DAILY
     Route: 065
  4. FLUDROCORTISONE [Concomitant]
     Indication: MINERALOCORTICOID DEFICIENCY
     Dosage: 50 MICROG DAILY
     Route: 065

REACTIONS (3)
  - Hypoaldosteronism [Recovered/Resolved]
  - Condition aggravated [Recovered/Resolved]
  - Bradycardia [Recovered/Resolved]
